FAERS Safety Report 18588669 (Version 1)
Quarter: 2020Q4

REPORT INFORMATION
  Report Type: Spontaneous
  Country: US (occurrence: US)
  Receive Date: 20201208
  Receipt Date: 20201208
  Transmission Date: 20210114
  Serious: Yes (Other)
  Sender: FDA-Public Use
  Company Number: US-TEVA-2020-US-1856861

PATIENT
  Sex: Female
  Weight: 90.26 kg

DRUGS (3)
  1. ALPRAZOLAM TEVA [Suspect]
     Active Substance: ALPRAZOLAM
     Indication: DEPRESSION
     Route: 065
  2. ESCITALOPRAM [Concomitant]
     Active Substance: ESCITALOPRAM OXALATE
     Dates: start: 2009
  3. ALPRAZOLAM ACTIVAS [Suspect]
     Active Substance: ALPRAZOLAM
     Indication: DEPRESSION
     Route: 065

REACTIONS (5)
  - Drug dependence [Unknown]
  - Product dose omission issue [Unknown]
  - Adverse event [Unknown]
  - Panic attack [Unknown]
  - Anxiety [Unknown]
